FAERS Safety Report 5322362-3 (Version None)
Quarter: 2007Q2

REPORT INFORMATION
  Report Type: 
  Country: None (occurrence: None)
  Receive Date: 20070511
  Receipt Date: 20070508
  Transmission Date: 20071010
  Serious: Yes (Death)
  Sender: FDA-Public Use
  Company Number: JP-ASTRAZENECA-2007AP02673

PATIENT
  Age: 71 Year
  Sex: Female

DRUGS (5)
  1. IRESSA [Suspect]
     Indication: LUNG NEOPLASM MALIGNANT
     Route: 048
     Dates: start: 20050920, end: 20070208
  2. CISPLATIN [Concomitant]
     Dosage: 2 COURSES
     Dates: start: 20040604, end: 20040709
  3. VINORELBINE [Concomitant]
     Dosage: 2 COURSES
     Dates: start: 20040604, end: 20040709
  4. RADIOTHERAPY [Concomitant]
     Dosage: 60 GY TO CHEST
     Dates: start: 20040609, end: 20040726
  5. RADIOTHERAPY [Concomitant]
     Dosage: 30 GY TO WHOLE BRAIN
     Dates: start: 20050415, end: 20050502

REACTIONS (1)
  - ACUTE MYELOID LEUKAEMIA [None]
